FAERS Safety Report 6463555-1 (Version None)
Quarter: 2009Q4

REPORT INFORMATION
  Report Type: 
  Country: None (occurrence: None)
  Receive Date: 20091105
  Receipt Date: 20091026
  Transmission Date: 20100525
  Serious: Yes (Death, Hospitalization)
  Sender: FDA-Public Use
  Company Number: AECAN200900302

PATIENT
  Age: 83 Year
  Sex: Female
  Weight: 57 kg

DRUGS (3)
  1. ALBUMIN (HUMAN) [Suspect]
     Indication: HYPOTENSION
     Dosage: 200 ML;TOTAL;IV
     Route: 042
     Dates: start: 20091014, end: 20091014
  2. ALBUMIN (HUMAN) [Suspect]
     Indication: PERITONITIS
     Dosage: 200 ML;TOTAL;IV
     Route: 042
     Dates: start: 20091014, end: 20091014
  3. SOLU-CORTEF [Concomitant]

REACTIONS (7)
  - ATELECTASIS [None]
  - BLOOD PRESSURE DECREASED [None]
  - HYPERTENSION [None]
  - INCORRECT DOSE ADMINISTERED [None]
  - INFUSION RELATED REACTION [None]
  - PYREXIA [None]
  - RESPIRATORY FAILURE [None]
